FAERS Safety Report 9949429 (Version 3)
Quarter: 2014Q1

REPORT INFORMATION
  Report Type: Spontaneous
  Country: US (occurrence: US)
  Receive Date: 20140304
  Receipt Date: 20140321
  Transmission Date: 20141002
  Serious: No
  Sender: FDA-Public Use
  Company Number: US-PFIZER INC-2014057389

PATIENT
  Age: 77 Year
  Sex: Male
  Weight: 86.17 kg

DRUGS (5)
  1. TOVIAZ [Suspect]
     Indication: URINARY INCONTINENCE
     Dosage: 8 MG, 1X/DAY
     Dates: start: 201402, end: 20140310
  2. TOVIAZ [Suspect]
     Indication: HYPERTONIC BLADDER
  3. DILTIAZEM [Concomitant]
     Indication: HYPERTENSION
     Dosage: DAILY
  4. CARTIA XT [Concomitant]
     Indication: HYPERTENSION
     Dosage: DAILY
  5. FOSINOPRIL [Concomitant]
     Indication: HYPERTENSION
     Dosage: DAILY

REACTIONS (1)
  - Drug ineffective [Not Recovered/Not Resolved]
